FAERS Safety Report 10283235 (Version 2)
Quarter: 2014Q3

REPORT INFORMATION
  Report Type: Spontaneous
  Country: US (occurrence: US)
  Receive Date: 20140708
  Receipt Date: 20140903
  Transmission Date: 20150326
  Serious: Yes (Hospitalization)
  Sender: FDA-Public Use
  Company Number: US-BAYER-2014-100901

PATIENT
  Age: 49 Year
  Sex: Female
  Weight: 78.91 kg

DRUGS (26)
  1. CYMBALTA [Concomitant]
     Active Substance: DULOXETINE HYDROCHLORIDE
     Indication: FIBROMYALGIA
     Dosage: UNK
     Dates: start: 2009
  2. RESPA-ARM [Concomitant]
  3. AZITHROMYCIN [Concomitant]
     Active Substance: AZITHROMYCIN ANHYDROUS
     Dosage: 250 MG,TAKE TWO TABLETS AT ONCE TODAY, TAKE ONE TABLET DAILY FOR FOUR
  4. ZANAFLEX [Concomitant]
     Active Substance: TIZANIDINE HYDROCHLORIDE
  5. BUPROPION HYDROCHLORIDE. [Concomitant]
     Active Substance: BUPROPION HYDROCHLORIDE
     Dosage: 150 MG, 1 TABLET EVERY DAY
  6. ERGOCALCIFEROL. [Concomitant]
     Active Substance: ERGOCALCIFEROL
  7. COLCHICINE. [Concomitant]
     Active Substance: COLCHICINE
     Dosage: 0.6 MG TABLET,1 EVERY 2 HRS UNTIL PAIN RESOLVES OR DIARRHEA OCCURS
     Route: 048
  8. IRON SUPPLEMENT [Concomitant]
     Active Substance: IRON
     Dosage: DAILY
  9. LEVOTHYROXINE [Concomitant]
     Active Substance: LEVOTHYROXINE
     Indication: HYPOTHYROIDISM
     Dosage: 75 MCG
     Dates: start: 2009
  10. CHERATUSSIN AC [Concomitant]
     Active Substance: CODEINE PHOSPHATE\GUAIFENESIN
     Dosage: TAKE 5 ML EVERY 8 HOURS PRN
     Route: 048
  11. WELLBUTRIN [Concomitant]
     Active Substance: BUPROPION HYDROCHLORIDE
  12. GIANVI [Suspect]
     Active Substance: DROSPIRENONE\ETHINYL ESTRADIOL
     Dosage: UNK
     Dates: start: 201007, end: 20110509
  13. OXYMETAZOLINE [Concomitant]
     Active Substance: OXYMETAZOLINE
  14. SERTRALINE [Concomitant]
     Active Substance: SERTRALINE HYDROCHLORIDE
     Dosage: 500 MG, TAKE ONE-HALF EVERY DAY FOR 1 WEEK, THEN ONE TA BLET EVERY DAY
     Route: 048
  15. INDOMETHACIN. [Concomitant]
     Active Substance: INDOMETHACIN
     Dosage: 20 MG, TID
     Route: 048
  16. AMBIEN [Concomitant]
     Active Substance: ZOLPIDEM TARTRATE
  17. YAZ [Suspect]
     Active Substance: DROSPIRENONE\ETHINYL ESTRADIOL
     Dosage: UNK
     Route: 048
     Dates: start: 200903, end: 201007
  18. VOLTAREN [Concomitant]
     Active Substance: DICLOFENAC SODIUM
     Dosage: APPLY 2 G, FOUR TIMES DAILY
     Route: 061
  19. TIZANIDINE [Concomitant]
     Active Substance: TIZANIDINE
     Dosage: 2 MG, PRN, 1 TABLET THREE TIMES DAILY
     Route: 048
  20. BUPROPION [Concomitant]
     Active Substance: BUPROPION
     Dosage: 100 MG, BID
     Route: 048
  21. RANITIDINE [Concomitant]
     Active Substance: RANITIDINE\RANITIDINE HYDROCHLORIDE
     Dosage: TAKE 1 TABLET AT NIGHT BEFORE BEDTIME
     Route: 048
  22. GUAIFENESIN. [Concomitant]
     Active Substance: GUAIFENESIN
  23. SYNTHROID [Concomitant]
     Active Substance: LEVOTHYROXINE SODIUM
     Indication: HYPOTHYROIDISM
  24. LIDOCAINE. [Concomitant]
     Active Substance: LIDOCAINE
  25. FLONASE [Concomitant]
     Active Substance: FLUTICASONE PROPIONATE
     Dosage: INHALE 2 SPRAYS DAILY
     Route: 045
  26. ZOLPIDEM [Concomitant]
     Active Substance: ZOLPIDEM\ZOLPIDEM TARTRATE
     Dosage: TAKE ONE TABLE
     Route: 048

REACTIONS (7)
  - Pain in extremity [None]
  - Thrombophlebitis superficial [None]
  - Chest discomfort [Recovered/Resolved]
  - Pulmonary embolism [Recovered/Resolved]
  - Deep vein thrombosis [None]
  - Dyspnoea [Recovered/Resolved]
  - Peripheral swelling [None]

NARRATIVE: CASE EVENT DATE: 20110321
